FAERS Safety Report 9596666 (Version 1)
Quarter: 2013Q4

REPORT INFORMATION
  Report Type: Spontaneous
  Country: FR (occurrence: FR)
  Receive Date: 20131004
  Receipt Date: 20131004
  Transmission Date: 20140711
  Serious: Yes (Death, Hospitalization)
  Sender: FDA-Public Use
  Company Number: FR-BRISTOL-MYERS SQUIBB COMPANY-19445725

PATIENT
  Age: 74 Year
  Sex: Female

DRUGS (9)
  1. ABILIFY TABS 15 MG [Suspect]
     Indication: DEMENTIA
     Dosage: 1DF:0.5 UNITS NOS
     Route: 048
     Dates: start: 201307, end: 20130811
  2. PRETERAX [Suspect]
     Indication: HYPERTENSION
     Dosage: 1DF: 10/2.5 UNITS NOS
     Route: 048
     Dates: end: 20130811
  3. CITALOPRAM [Suspect]
     Indication: DEPRESSION
     Route: 048
     Dates: end: 20130811
  4. LAMALINE [Suspect]
     Indication: PAIN
     Route: 048
     Dates: end: 20130811
  5. ZOPICLONE [Suspect]
     Indication: SLEEP DISORDER
     Dates: end: 20130811
  6. XANAX [Suspect]
     Indication: ANXIETY
     Route: 048
     Dates: end: 20130811
  7. LOXAPAC [Suspect]
     Indication: DEMENTIA
     Route: 048
     Dates: start: 20130729, end: 20130811
  8. LANTUS [Concomitant]
     Indication: TYPE 2 DIABETES MELLITUS
     Route: 058
     Dates: start: 20130811
  9. NOVORAPID [Concomitant]
     Indication: TYPE 2 DIABETES MELLITUS
     Dosage: 8 UNITS IN THE MORNING, 8 UNITS AT LUNCH TIME AND 12 UNITS IN THE EVENING
     Route: 058

REACTIONS (6)
  - Death [Fatal]
  - Inflammation [Unknown]
  - Diabetic hyperosmolar coma [Unknown]
  - Renal failure acute [Unknown]
  - Pneumonia aspiration [Unknown]
  - Somnolence [Unknown]
